FAERS Safety Report 9282657 (Version 2)
Quarter: 2013Q2

REPORT INFORMATION
  Report Type: Report from Study
  Country: CN (occurrence: CN)
  Receive Date: 20130510
  Receipt Date: 20130513
  Transmission Date: 20140414
  Serious: Yes (Death)
  Sender: FDA-Public Use
  Company Number: PHHY2013CN046103

PATIENT
  Age: 62 Year
  Sex: Male

DRUGS (2)
  1. SEBIVO [Suspect]
     Indication: CHRONIC HEPATITIS B
     Dosage: UNK
     Dates: start: 201303
  2. DIAMMONIUM GLYCYRRHIZINATE [Concomitant]
     Indication: HEPATIC FUNCTION ABNORMAL
     Dosage: UNK

REACTIONS (1)
  - Hepatic cancer [Fatal]
